FAERS Safety Report 6879427-4 (Version None)
Quarter: 2010Q3

REPORT INFORMATION
  Report Type: 
  Country: None (occurrence: None)
  Receive Date: 20100728
  Receipt Date: 20100715
  Transmission Date: 20110219
  Serious: Yes (Hospitalization, Other)
  Sender: FDA-Public Use
  Company Number: PHHY2009TW61004

PATIENT
  Sex: Male

DRUGS (1)
  1. EXJADE [Suspect]
     Dosage: 1750 MG, 12 TABLETS
     Route: 048

REACTIONS (4)
  - CELLULITIS [None]
  - INFECTION [None]
  - INSOMNIA [None]
  - PAIN [None]
